FAERS Safety Report 6702250-8 (Version None)
Quarter: 2010Q2

REPORT INFORMATION
  Report Type: 
  Country: None (occurrence: None)
  Receive Date: 20100429
  Receipt Date: 20100421
  Transmission Date: 20101027
  Serious: Yes (Hospitalization)
  Sender: FDA-Public Use
  Company Number: US-MERCK-1004USA03527

PATIENT
  Age: 58 Year
  Sex: Female

DRUGS (5)
  1. FOSAMAX [Suspect]
     Indication: OSTEOPOROSIS
     Route: 048
     Dates: start: 20000101, end: 20091201
  2. PREVACID [Concomitant]
     Route: 065
  3. MOBIC [Concomitant]
     Route: 065
  4. CRESTOR [Concomitant]
     Route: 065
  5. VYTORIN [Concomitant]
     Route: 048

REACTIONS (5)
  - DRUG INEFFECTIVE [None]
  - INAPPROPRIATE SCHEDULE OF DRUG ADMINISTRATION [None]
  - OSTEOARTHRITIS [None]
  - OSTEOPOROSIS [None]
  - TOOTH DISORDER [None]
